FAERS Safety Report 19259926 (Version 1)
Quarter: 2021Q2

REPORT INFORMATION
  Report Type: Spontaneous
  Country: US (occurrence: US)
  Receive Date: 20210514
  Receipt Date: 20210514
  Transmission Date: 20210717
  Serious: No
  Sender: FDA-Public Use
  Company Number: US-MYLANLABS-2021M1026962

PATIENT
  Sex: Female

DRUGS (1)
  1. LEVOTHYROXINE SODIUM TABLETS, USP [Suspect]
     Active Substance: LEVOTHYROXINE SODIUM
     Indication: HYPOTHYROIDISM
     Dosage: 50 MICROGRAM, QD (ONE DAILY)
     Route: 048

REACTIONS (5)
  - Nasopharyngitis [Unknown]
  - Oropharyngeal discomfort [Unknown]
  - Nasal congestion [Unknown]
  - Product formulation issue [Unknown]
  - Micturition disorder [Unknown]
